FAERS Safety Report 20955064 (Version 3)
Quarter: 2022Q3

REPORT INFORMATION
  Report Type: Spontaneous
  Country: GB (occurrence: GB)
  Receive Date: 20220614
  Receipt Date: 20220719
  Transmission Date: 20221026
  Serious: Yes (Hospitalization)
  Sender: FDA-Public Use
  Company Number: GB-MYLANLABS-2022M1020642

PATIENT
  Age: 43 Year
  Sex: Male

DRUGS (1)
  1. CLOZARIL [Suspect]
     Active Substance: CLOZAPINE
     Indication: Schizophrenia
     Dosage: UNK
     Route: 048
     Dates: start: 20031006

REACTIONS (3)
  - Hospitalisation [Not Recovered/Not Resolved]
  - Differential white blood cell count abnormal [Not Recovered/Not Resolved]
  - Leukocytosis [Unknown]

NARRATIVE: CASE EVENT DATE: 20220315
